FAERS Safety Report 10795434 (Version 1)
Quarter: 2015Q1

REPORT INFORMATION
  Report Type: Spontaneous
  Country: US (occurrence: US)
  Receive Date: 20150215
  Receipt Date: 20150215
  Transmission Date: 20150721
  Serious: No
  Sender: FDA-Public Use
  Company Number: US-009507513-1502USA005875

PATIENT
  Age: 62 Year
  Sex: Male

DRUGS (4)
  1. METHOTREXATE [Suspect]
     Active Substance: METHOTREXATE
     Indication: BENIGN FAMILIAL PEMPHIGUS
     Dosage: UNKNOWN
  2. HYDROCORTISONE. [Suspect]
     Active Substance: HYDROCORTISONE
     Indication: BENIGN FAMILIAL PEMPHIGUS
     Dosage: UNKNOWN
  3. TRIAMCINOLONE [Suspect]
     Active Substance: TRIAMCINOLONE
     Indication: BENIGN FAMILIAL PEMPHIGUS
     Dosage: UNKNOWN
  4. ACCUTANE [Suspect]
     Active Substance: ISOTRETINOIN
     Indication: BENIGN FAMILIAL PEMPHIGUS
     Dosage: UNKNOWN

REACTIONS (1)
  - Drug ineffective [Unknown]
